FAERS Safety Report 8921712 (Version 2)
Quarter: 2013Q3

REPORT INFORMATION
  Report Type: Spontaneous
  Country: US (occurrence: US)
  Receive Date: 20121121
  Receipt Date: 20130912
  Transmission Date: 20140515
  Serious: Yes (Hospitalization, Other)
  Sender: FDA-Public Use
  Company Number: US-PFIZER INC-2012291380

PATIENT
  Age: 76 Year
  Sex: Female
  Weight: 88.44 kg

DRUGS (3)
  1. LIPITOR [Suspect]
     Indication: BLOOD CHOLESTEROL INCREASED
     Dosage: 20 MG, DAILY
  2. LASIX [Concomitant]
     Dosage: UNK
  3. POTASSIUM [Concomitant]
     Dosage: UNK

REACTIONS (2)
  - Respiratory arrest [Unknown]
  - Fall [Unknown]
